FAERS Safety Report 21382197 (Version 2)
Quarter: 2022Q4

REPORT INFORMATION
  Report Type: Spontaneous
  Country: DE (occurrence: DE)
  Receive Date: 20220927
  Receipt Date: 20221005
  Transmission Date: 20230113
  Serious: Yes (Other)
  Sender: FDA-Public Use
  Company Number: DE-MYLANLABS-2022M1095641

PATIENT
  Age: 68 Year
  Sex: Male

DRUGS (4)
  1. MUSE [Suspect]
     Active Substance: ALPROSTADIL
     Indication: Erectile dysfunction
     Dosage: UNK
     Route: 065
     Dates: start: 20220903, end: 20220916
  2. TADALAFIL [Concomitant]
     Active Substance: TADALAFIL
     Indication: Blood disorder
     Dosage: 5 MILLIGRAM, QD
     Route: 048
     Dates: start: 202111
  3. SIMVASTATIN [Concomitant]
     Active Substance: SIMVASTATIN
     Indication: Blood cholesterol
     Dosage: 20 MILLIGRAM, QD
     Route: 065
     Dates: start: 202110
  4. Vigantol [Concomitant]
     Indication: Immune system disorder
     Dosage: 1000 INTERNATIONAL UNIT
     Route: 048
     Dates: start: 202007

REACTIONS (2)
  - Erectile dysfunction [Unknown]
  - Drug ineffective [Unknown]
